FAERS Safety Report 6710543-3 (Version None)
Quarter: 2010Q2

REPORT INFORMATION
  Report Type: 
  Country: None (occurrence: None)
  Receive Date: 20100504
  Receipt Date: 20100426
  Transmission Date: 20101027
  Serious: Yes (Hospitalization)
  Sender: FDA-Public Use
  Company Number: FR-ABBOTT-10P-056-0640629-00

PATIENT
  Sex: Female
  Weight: 63 kg

DRUGS (4)
  1. SIBUTRAL [Suspect]
     Indication: DRUG USE FOR UNKNOWN INDICATION
     Route: 048
     Dates: start: 20100301, end: 20100314
  2. SIBUTRAL [Suspect]
  3. PARACETAMOL [Concomitant]
     Indication: HEADACHE
  4. BALSOFUMINE [Concomitant]
     Indication: DRUG USE FOR UNKNOWN INDICATION

REACTIONS (3)
  - DRUG EFFECT DECREASED [None]
  - HEMIANOPIA HOMONYMOUS [None]
  - SELF-MEDICATION [None]
